FAERS Safety Report 5655222-9 (Version None)
Quarter: 2008Q1

REPORT INFORMATION
  Report Type: 
  Country: None (occurrence: None)
  Receive Date: 20080307
  Receipt Date: 20080225
  Transmission Date: 20080703
  Serious: Yes (Other)
  Sender: FDA-Public Use
  Company Number: DE-GENENTECH-249056

PATIENT
  Sex: Male
  Weight: 53 kg

DRUGS (1)
  1. RANIBIZUMAB [Suspect]
     Indication: MACULAR DEGENERATION
     Dosage: 0.05 A?L, UNK
     Route: 031
     Dates: start: 20070220, end: 20071106

REACTIONS (2)
  - ARRHYTHMIA [None]
  - CORONARY ARTERY DISEASE [None]
